FAERS Safety Report 21664181 (Version 1)
Quarter: 2022Q4

REPORT INFORMATION
  Report Type: Spontaneous
  Country: US (occurrence: US)
  Receive Date: 20221130
  Receipt Date: 20221130
  Transmission Date: 20230113
  Serious: No
  Sender: FDA-Public Use
  Company Number: US-PFIZER INC-202201337010

PATIENT
  Age: 68 Year
  Sex: Female
  Weight: 81.65 kg

DRUGS (3)
  1. SUTENT [Suspect]
     Active Substance: SUNITINIB MALATE
     Indication: Liver disorder
     Dosage: UNK
  2. VOTRIENT [Suspect]
     Active Substance: PAZOPANIB HYDROCHLORIDE
     Indication: Liver disorder
     Dosage: 200 MG, DAILY (90 PILLS EVERY TIME )
  3. VOTRIENT [Suspect]
     Active Substance: PAZOPANIB HYDROCHLORIDE
     Dosage: 200 MG, 3X/DAY
     Dates: start: 202208

REACTIONS (7)
  - Off label use [Unknown]
  - Gingival swelling [Unknown]
  - Chromaturia [Unknown]
  - Pain in extremity [Unknown]
  - Hyperkeratosis [Unknown]
  - Skin discolouration [Unknown]
  - Taste disorder [Unknown]

NARRATIVE: CASE EVENT DATE: 20220101
